FAERS Safety Report 7736742-X (Version None)
Quarter: 2011Q3

REPORT INFORMATION
  Report Type: 
  Country: None (occurrence: None)
  Receive Date: 20110908
  Receipt Date: 20110831
  Transmission Date: 20111222
  Serious: Yes (Death, Hospitalization, Other)
  Sender: FDA-Public Use
  Company Number: PHHY2011NO49673

PATIENT
  Sex: Female

DRUGS (9)
  1. CALCIUM CARBONATE [Concomitant]
     Dosage: UNK UKN, UNK
  2. ZOLEDRONOC ACID [Suspect]
     Indication: OSTEOPOROSIS
     Dosage: 5 MG, UNK
     Route: 042
     Dates: start: 20110322
  3. APROVEL [Concomitant]
     Indication: CARDIAC FAILURE
     Dosage: 150 MG, QD
     Route: 048
  4. BUMETANIDE [Concomitant]
     Indication: CARDIAC FAILURE
     Dosage: 1 MG, QD
     Route: 048
  5. ACE INHIBITOR NOS [Concomitant]
     Dosage: UNK UKN, UNK
  6. ZOLEDRONOC ACID [Suspect]
     Route: 051
     Dates: start: 20110328, end: 20110328
  7. BUMETANIDE [Concomitant]
     Dosage: 1 MG, QD
     Route: 048
     Dates: start: 20110406
  8. APROVEL [Concomitant]
     Dosage: 150 MG QD
     Route: 048
  9. ROCALTROL [Concomitant]
     Dosage: UNK UKN, UNK
     Route: 048
     Dates: start: 20110406

REACTIONS (11)
  - HEART RATE INCREASED [None]
  - CARDIAC FAILURE [None]
  - BLOOD CREATININE INCREASED [None]
  - DYSPNOEA [None]
  - SUBDURAL HAEMORRHAGE [None]
  - HYDRONEPHROSIS [None]
  - RENAL FAILURE [None]
  - LEFT VENTRICULAR HYPERTROPHY [None]
  - URINARY RETENTION [None]
  - CARDIAC FAILURE ACUTE [None]
  - HEPATIC ENZYME INCREASED [None]
